FAERS Safety Report 9644902 (Version 2)
Quarter: 2013Q4

REPORT INFORMATION
  Report Type: Spontaneous
  Country: US (occurrence: US)
  Receive Date: 20131025
  Receipt Date: 20131202
  Transmission Date: 20140711
  Serious: No
  Sender: FDA-Public Use
  Company Number: US-PFIZER INC-2013303276

PATIENT
  Age: 75 Year
  Sex: Female

DRUGS (5)
  1. LIPITOR [Suspect]
     Dosage: UNK
     Dates: start: 201210
  2. LIPITOR [Suspect]
     Dosage: 80 MG, UNK
  3. LIPITOR [Suspect]
     Dosage: 40 MG, UNK
  4. ATORVASTATIN CALCIUM [Suspect]
     Dosage: UNK
  5. CLORAZEPATE [Concomitant]
     Indication: ANXIETY
     Dosage: 7.5 MG, UNK

REACTIONS (2)
  - Stomatitis [Not Recovered/Not Resolved]
  - Product physical issue [Unknown]
